FAERS Safety Report 23351023 (Version 1)
Quarter: 2023Q4

REPORT INFORMATION
  Report Type: Report from Study
  Country: AU (occurrence: AU)
  Receive Date: 20231229
  Receipt Date: 20231229
  Transmission Date: 20240109
  Serious: Yes (Other)
  Sender: FDA-Public Use
  Company Number: AU-002147023-NVSC2023AU167542

PATIENT
  Sex: Female

DRUGS (1)
  1. COSENTYX [Suspect]
     Active Substance: SECUKINUMAB
     Indication: Psoriatic arthropathy
     Dosage: 300 MG, QMO (INJECT 2 PENS EVERY 4 WEEKS ON SCHEDULED INJECTION DATE)
     Route: 058
     Dates: start: 20191111

REACTIONS (2)
  - Frontotemporal dementia [Unknown]
  - Nervous system disorder [Unknown]
